FAERS Safety Report 7013691-6 (Version None)
Quarter: 2010Q3

REPORT INFORMATION
  Report Type: 
  Country: None (occurrence: None)
  Receive Date: 20100924
  Receipt Date: 20100921
  Transmission Date: 20110219
  Serious: Yes (Death, Hospitalization)
  Sender: FDA-Public Use
  Company Number: US-TYCO HEALTHCARE/MALLINCKRODT-T201001970

PATIENT
  Age: 36 Year
  Sex: Male

DRUGS (5)
  1. EXALGO [Suspect]
     Indication: BACK PAIN
     Dosage: 12 MG, AT NIGHT
     Route: 048
     Dates: start: 20100604, end: 20100601
  2. OXYCODONE [Suspect]
     Indication: BACK PAIN
     Dosage: 30 MG, TID
     Dates: start: 20100601
  3. MORPHINE [Suspect]
     Dosage: 15 MG, ONE TO TWO BID PRN
     Route: 048
     Dates: end: 20100604
  4. WELLBUTRIN [Concomitant]
     Dosage: 150 MG, QD
     Route: 048
  5. TRAZODONE HCL [Concomitant]
     Dosage: 50 MG, QD AT HS
     Route: 048

REACTIONS (6)
  - DEATH [None]
  - HYPOXIA [None]
  - IDIOPATHIC THROMBOCYTOPENIC PURPURA [None]
  - INFLUENZA LIKE ILLNESS [None]
  - MUSCLE SPASMS [None]
  - SUBSTANCE ABUSE [None]
